FAERS Safety Report 7846672 (Version 2)
Quarter: 2013Q3

REPORT INFORMATION
  Report Type: Report from Study
  Country: JP (occurrence: JP)
  Receive Date: 20110308
  Receipt Date: 20130930
  Transmission Date: 20140515
  Serious: Yes (Hospitalization, Other)
  Sender: FDA-Public Use
  Company Number: PHHO2008JP02578

PATIENT
  Age: 54 Year
  Sex: Female
  Weight: 45 kg

DRUGS (2)
  1. FTY [Suspect]
     Indication: MULTIPLE SCLEROSIS
     Dosage: 1.25 MG, QD
     Route: 048
     Dates: start: 20080213, end: 20080501
  2. ROHYPNOL [Concomitant]

REACTIONS (23)
  - Multiple sclerosis [Recovering/Resolving]
  - Bradycardia [Recovered/Resolved]
  - Hepatic function abnormal [Recovering/Resolving]
  - Anxiety [Unknown]
  - Pyrexia [Unknown]
  - Muscular weakness [Recovering/Resolving]
  - Sensory loss [Recovering/Resolving]
  - Sensory disturbance [Recovering/Resolving]
  - Central nervous system lesion [Recovering/Resolving]
  - Chest discomfort [Recovering/Resolving]
  - Back pain [Recovering/Resolving]
  - Aphasia [Not Recovered/Not Resolved]
  - Nervous system disorder [Not Recovered/Not Resolved]
  - Motor dysfunction [Recovering/Resolving]
  - Malaise [Unknown]
  - Muscle tightness [Recovering/Resolving]
  - Muscle fatigue [Recovering/Resolving]
  - Heart rate decreased [Recovered/Resolved]
  - Nausea [Recovering/Resolving]
  - Pain [Recovering/Resolving]
  - Decreased appetite [Recovering/Resolving]
  - Restlessness [Unknown]
  - Gallbladder polyp [Not Recovered/Not Resolved]
